FAERS Safety Report 4425305-X (Version None)
Quarter: 2004Q3

REPORT INFORMATION
  Report Type: 
  Country: None (occurrence: None)
  Receive Date: 20040812
  Receipt Date: 20040812
  Transmission Date: 20050211
  Serious: Yes (Life-Threatening, Hospitalization)
  Sender: FDA-Public Use
  Company Number: None

PATIENT
  Age: 46 Year
  Sex: Male
  Weight: 81.7 kg

DRUGS (2)
  1. ZYPREXA [Suspect]
     Indication: AGGRESSION
     Dosage: PO QAM
     Route: 048
  2. ZYPREXA [Suspect]
     Indication: AGITATION
     Dosage: PO QAM
     Route: 048

REACTIONS (11)
  - BRADYCARDIA [None]
  - CONVULSION [None]
  - ELECTROMECHANICAL DISSOCIATION [None]
  - EXTUBATION [None]
  - HYPOTENSION [None]
  - MENTAL STATUS CHANGES [None]
  - NEUROLEPTIC MALIGNANT SYNDROME [None]
  - RESUSCITATION [None]
  - SALIVARY HYPERSECRETION [None]
  - SINUS TACHYCARDIA [None]
  - TREMOR [None]
